FAERS Safety Report 8668863 (Version 10)
Quarter: 2014Q1

REPORT INFORMATION
  Report Type: Spontaneous
  Country: GB (occurrence: GB)
  Receive Date: 20120717
  Receipt Date: 20140326
  Transmission Date: 20141002
  Serious: Yes (Other)
  Sender: FDA-Public Use
  Company Number: PHFR2012GB002262

PATIENT
  Age: 43 Year
  Sex: Female

DRUGS (6)
  1. CLOZARIL [Suspect]
     Indication: SCHIZOPHRENIA
     Dosage: UNK
     Route: 048
     Dates: start: 20071012
  2. CLOZARIL [Suspect]
     Dosage: 200 MG, DAILY
     Route: 048
  3. CLOZARIL [Suspect]
     Dosage: 100 MG, BID
     Route: 048
     Dates: start: 200712
  4. FLUOXETINE [Concomitant]
     Indication: DEPRESSION
     Dosage: 20 MG
     Route: 048
  5. HYOSCINE BROMIDE [Concomitant]
     Indication: SCHIZOPHRENIA
     Dosage: 300 MG
     Route: 048
  6. LANSOPRAZOLE [Concomitant]
     Indication: PROPHYLAXIS
     Dosage: 15 MG, UNK
     Route: 048
     Dates: start: 20121010

REACTIONS (13)
  - Lymphoma [Unknown]
  - Tuberculosis [Unknown]
  - Sarcoidosis [Not Recovered/Not Resolved]
  - Lymphadenopathy mediastinal [Unknown]
  - Splenomegaly [Unknown]
  - Bone marrow granuloma [Unknown]
  - Splenic lesion [Unknown]
  - Hepatomegaly [Unknown]
  - Scan bone marrow abnormal [Unknown]
  - Spleen disorder [Unknown]
  - Anaemia [Recovering/Resolving]
  - Thrombocytopenia [Unknown]
  - Platelet count decreased [Not Recovered/Not Resolved]
